FAERS Safety Report 10429507 (Version 2)
Quarter: 2014Q3

REPORT INFORMATION
  Report Type: Spontaneous
  Country: US (occurrence: US)
  Receive Date: 20140904
  Receipt Date: 20140904
  Transmission Date: 20150326
  Serious: No
  Sender: FDA-Public Use
  Company Number: US-SHIRE-20140103CINRY5606

PATIENT
  Age: 17 Year
  Sex: Female

DRUGS (2)
  1. CINRYZE [Suspect]
     Active Substance: HUMAN C1-ESTERASE INHIBITOR
     Indication: PROPHYLAXIS
  2. CINRYZE [Suspect]
     Active Substance: HUMAN C1-ESTERASE INHIBITOR
     Indication: HEREDITARY ANGIOEDEMA
     Dosage: 1000 U, OTHER (QOD)
     Route: 042
     Dates: start: 20110316, end: 20140602

REACTIONS (9)
  - Off label use [Recovered/Resolved]
  - Dehydration [Unknown]
  - Hereditary angioedema [Recovered/Resolved]
  - Off label use [Recovered/Resolved]
  - Swelling [Recovered/Resolved]
  - Hereditary angioedema [Recovered/Resolved]
  - Exposure during pregnancy [Recovered/Resolved]
  - Nausea [Unknown]
  - Inappropriate schedule of drug administration [Not Recovered/Not Resolved]

NARRATIVE: CASE EVENT DATE: 20110316
